FAERS Safety Report 8805573 (Version 2)
Quarter: 2015Q3

REPORT INFORMATION
  Report Type: Report from Study
  Country: US (occurrence: US)
  Receive Date: 20120924
  Receipt Date: 20150701
  Transmission Date: 20151125
  Serious: Yes (Death)
  Sender: FDA-Public Use
  Company Number: US-ROCHE-1127104

PATIENT
  Sex: Female

DRUGS (6)
  1. AVASTIN [Suspect]
     Active Substance: BEVACIZUMAB
     Indication: BREAST CANCER FEMALE
     Route: 042
     Dates: start: 20091111
  2. DEXAMETHASONE. [Concomitant]
     Active Substance: DEXAMETHASONE
     Route: 042
  3. XELODA [Suspect]
     Active Substance: CAPECITABINE
     Indication: PRODUCT USED FOR UNKNOWN INDICATION
     Route: 065
  4. DIPHENHYDRAMINE. [Concomitant]
     Active Substance: DIPHENHYDRAMINE
  5. LEUKINE [Concomitant]
     Active Substance: SARGRAMOSTIM
  6. ACTIVASE [Concomitant]
     Active Substance: ALTEPLASE
     Route: 065

REACTIONS (12)
  - Disease progression [Unknown]
  - Erythema [Unknown]
  - Fatigue [Unknown]
  - Dyspnoea exertional [Unknown]
  - No therapeutic response [Unknown]
  - Gravitational oedema [Unknown]
  - Death [Fatal]
  - Cytopenia [Unknown]
  - Wheezing [Unknown]
  - Anaemia [Unknown]
  - Pain [Unknown]
  - Gastrooesophageal reflux disease [Unknown]
